FAERS Safety Report 13755362 (Version 1)
Quarter: 2017Q3

REPORT INFORMATION
  Report Type: Spontaneous
  Country: US (occurrence: US)
  Receive Date: 20170714
  Receipt Date: 20170714
  Transmission Date: 20171127
  Serious: No
  Sender: FDA-Public Use
  Company Number: US-PFIZER INC-2017306985

PATIENT
  Sex: Male

DRUGS (3)
  1. LYRICA [Suspect]
     Active Substance: PREGABALIN
     Dosage: ^2/DAY^
  2. LYRICA [Suspect]
     Active Substance: PREGABALIN
     Dosage: ^1/DAY^
  3. LYRICA [Suspect]
     Active Substance: PREGABALIN
     Dosage: ^2/DAY^
     Dates: end: 201706

REACTIONS (1)
  - Pain [Unknown]
